FAERS Safety Report 4422461-4 (Version None)
Quarter: 2004Q3

REPORT INFORMATION
  Report Type: 
  Country: None (occurrence: None)
  Receive Date: 20040806
  Receipt Date: 20040720
  Transmission Date: 20050211
  Serious: Yes (Other)
  Sender: FDA-Public Use
  Company Number: USA040363499

PATIENT
  Sex: Female

DRUGS (4)
  1. FORTEO [Suspect]
     Indication: OSTEOPOROSIS
     Dosage: UNK
     Route: 065
     Dates: start: 20040310
  2. FORTEO [Suspect]
     Indication: THYROID DISORDER
     Dosage: UNK
     Route: 065
     Dates: start: 20040310
  3. SYNTHROID [Concomitant]
  4. LASIX [Concomitant]

REACTIONS (5)
  - ARTHRALGIA [None]
  - HEADACHE [None]
  - ILEUS PARALYTIC [None]
  - NAUSEA [None]
  - VOMITING [None]
